FAERS Safety Report 8257379-2 (Version None)
Quarter: 2012Q2

REPORT INFORMATION
  Report Type: 
  Country: None (occurrence: None)
  Receive Date: 20120403
  Receipt Date: 20120330
  Transmission Date: 20120825
  Serious: Yes (Other)
  Sender: FDA-Public Use
  Company Number: JP-PFIZER INC-2012051471

PATIENT
  Age: 73 Year
  Sex: Male

DRUGS (3)
  1. CONIEL [Concomitant]
  2. LASIX [Concomitant]
  3. DOXAZOSIN MESYLATE [Suspect]
     Indication: HYPERTENSION
     Dosage: 2 MG, 1X/DAY BEFORE SLEEP
     Route: 048
     Dates: start: 20111101

REACTIONS (4)
  - BLOOD ALKALINE PHOSPHATASE INCREASED [None]
  - COLOUR BLINDNESS ACQUIRED [None]
  - BLOOD CREATININE INCREASED [None]
  - BLOOD UREA INCREASED [None]
